FAERS Safety Report 19675920 (Version 1)
Quarter: 2021Q3

REPORT INFORMATION
  Report Type: Spontaneous
  Country: HU (occurrence: HU)
  Receive Date: 20210809
  Receipt Date: 20210809
  Transmission Date: 20211014
  Serious: Yes (Hospitalization)
  Sender: FDA-Public Use
  Company Number: HU-VERTEX PHARMACEUTICALS-2021-008245

PATIENT
  Sex: Male

DRUGS (9)
  1. ORKAMBI [Suspect]
     Active Substance: IVACAFTOR\LUMACAFTOR
     Indication: CYSTIC FIBROSIS
     Dosage: 200 MG LUMACAFTOR/ 125 MG IVACAFTOR, FREQUENCY UNKNOWN
     Route: 048
     Dates: start: 20210406, end: 20210510
  2. VITAMIN A [RETINOL] [Concomitant]
     Active Substance: RETINOL
     Dosage: 25000 E
  3. PULMOZYME [Concomitant]
     Active Substance: DORNASE ALFA
     Dosage: 1 DOSAGE FORM, QD (IN AM)
  4. VITAMIN E [Concomitant]
     Active Substance: .ALPHA.-TOCOPHEROL
     Dosage: 400 MG, QD
  5. VITAMIN D3 [Concomitant]
     Active Substance: CHOLECALCIFEROL
     Dosage: 3000 E IN EVERY 2 DAYS
  6. IVABRADIN [Concomitant]
     Active Substance: IVABRADINE
     Dosage: 2.5 MG, QD (IN MORNING)
  7. QUINSAIR [Concomitant]
     Active Substance: LEVOFLOXACIN
     Dosage: 1 DOSAGE FORM, QD CAPSULE
  8. CREON [Concomitant]
     Active Substance: PANCRELIPASE AMYLASE\PANCRELIPASE LIPASE\PANCRELIPASE PROTEASE
     Dosage: 3 DOSAGE FORM (25000 E), TID CAPSULE
  9. FLUIMUCIL [Concomitant]
     Active Substance: ACETYLCYSTEINE
     Dosage: 600?400 MG

REACTIONS (7)
  - Pseudomonas test positive [Unknown]
  - Insomnia [Unknown]
  - Aspergillus test positive [Unknown]
  - Chest discomfort [Unknown]
  - Forced expiratory volume decreased [Recovered/Resolved]
  - Panic attack [Recovered/Resolved]
  - Dyspnoea [Recovering/Resolving]

NARRATIVE: CASE EVENT DATE: 2021
